APPROVED DRUG PRODUCT: SINE-AID IB
Active Ingredient: IBUPROFEN; PSEUDOEPHEDRINE HYDROCHLORIDE
Strength: 200MG;30MG
Dosage Form/Route: TABLET;ORAL
Application: N019899 | Product #001
Applicant: KENVUE BRANDS LLC
Approved: Dec 31, 1992 | RLD: No | RS: No | Type: OTC